FAERS Safety Report 7263237-2 (Version None)
Quarter: 2011Q1

REPORT INFORMATION
  Report Type: 
  Country: None (occurrence: None)
  Receive Date: 20110130
  Receipt Date: 20101012
  Transmission Date: 20110831
  Serious: No
  Sender: FDA-Public Use
  Company Number: US-ABBOTT-10P-163-0678298-00

PATIENT
  Sex: Male
  Weight: 118.04 kg

DRUGS (2)
  1. HUMIRA [Suspect]
     Indication: PSORIASIS
     Route: 058
     Dates: start: 20091001, end: 20100301
  2. HUMIRA [Suspect]
     Route: 058
     Dates: start: 20100801

REACTIONS (4)
  - SNEEZING [None]
  - RHINORRHOEA [None]
  - PAIN [None]
  - COUGH [None]
